FAERS Safety Report 11156644 (Version 1)
Quarter: 2015Q2

REPORT INFORMATION
  Report Type: Report from Study
  Country: FR (occurrence: FR)
  Receive Date: 20150602
  Receipt Date: 20150602
  Transmission Date: 20150821
  Serious: Yes (Hospitalization, Other)
  Sender: FDA-Public Use
  Company Number: FR-GLAXOSMITHKLINE-FR2015GSK075454

PATIENT
  Age: 55 Year
  Sex: Male

DRUGS (9)
  1. LASILIX [Concomitant]
     Active Substance: FUROSEMIDE
  2. OMEGA-3-ACID ETHYL ESTERS. [Suspect]
     Active Substance: OMEGA-3-ACID ETHYL ESTERS
     Indication: ISCHAEMIC HEART DISEASE PROPHYLAXIS
     Dosage: UNK
     Dates: start: 20090904
  3. COVERSYL [Concomitant]
     Active Substance: PERINDOPRIL
  4. TAHOR [Concomitant]
     Active Substance: ATORVASTATIN CALCIUM
  5. CARDENSIEL [Concomitant]
     Active Substance: BISOPROLOL FUMARATE
  6. PLAVIX [Concomitant]
     Active Substance: CLOPIDOGREL BISULFATE
  7. FLUINDIONE [Concomitant]
     Active Substance: FLUINDIONE
  8. KARDEGIC [Concomitant]
     Active Substance: ASPIRIN LYSINE
  9. INSPRA [Concomitant]
     Active Substance: EPLERENONE

REACTIONS (1)
  - Rheumatoid arthritis [Unknown]

NARRATIVE: CASE EVENT DATE: 20100915
